FAERS Safety Report 4929290-3 (Version None)
Quarter: 2006Q1

REPORT INFORMATION
  Report Type: 
  Country: None (occurrence: None)
  Receive Date: 20060223
  Receipt Date: 20060131
  Transmission Date: 20060701
  Serious: Yes (Death, Hospitalization, Other)
  Sender: FDA-Public Use
  Company Number: USA040670853

PATIENT
  Age: 76 Year
  Sex: Female

DRUGS (5)
  1. FORTEO [Suspect]
     Indication: OSTEOPOROSIS
     Dosage: 20 UG, DAILY (1/D), UNK
     Dates: start: 20040601, end: 20050201
  2. PLAVIX [Concomitant]
  3. ALLERGY SHOT (ALLERGY SHOT) [Concomitant]
  4. FORTEO PEN, 250MCG/ML(3ML) (FORTEO PEN 250MCG/ML (3ML)) PEN, DISPOSABL [Concomitant]
  5. FORTEO PEN 250MCG/ML (3ML) (FORTEO PEN 250MCG/ML (3ML)) PEN, DISPOSABL [Concomitant]

REACTIONS (21)
  - ABASIA [None]
  - ADRENAL CYST [None]
  - CEREBRAL ARTERIOSCLEROSIS [None]
  - COGNITIVE DISORDER [None]
  - CONFUSIONAL STATE [None]
  - DECREASED APPETITE [None]
  - DIZZINESS [None]
  - FATIGUE [None]
  - HALLUCINATION, AUDITORY [None]
  - HYPOKALAEMIA [None]
  - LIPOMA [None]
  - LUNG NEOPLASM MALIGNANT [None]
  - MALIGNANT NEOPLASM PROGRESSION [None]
  - METASTASES TO LIVER [None]
  - NEUROENDOCRINE CARCINOMA [None]
  - PAIN IN EXTREMITY [None]
  - PNEUMONIA [None]
  - RENAL CYST [None]
  - SMALL CELL CARCINOMA [None]
  - SOMNOLENCE [None]
  - SPEECH DISORDER [None]
